FAERS Safety Report 9213162 (Version 1)
Quarter: 2013Q2

REPORT INFORMATION
  Report Type: Spontaneous
  Country: AU (occurrence: AU)
  Receive Date: 20130405
  Receipt Date: 20130405
  Transmission Date: 20140414
  Serious: Yes (Other)
  Sender: FDA-Public Use
  Company Number: AU-JNJFOC-20130318852

PATIENT
  Age: 3 Decade
  Sex: Female

DRUGS (1)
  1. REMICADE [Suspect]
     Indication: CROHN^S DISEASE
     Dosage: 1ST INFUSION
     Route: 042

REACTIONS (4)
  - Serum sickness-like reaction [Unknown]
  - Panic attack [Unknown]
  - Chest discomfort [Unknown]
  - Infusion related reaction [Unknown]
